FAERS Safety Report 9580756 (Version 1)
Quarter: 2013Q4

REPORT INFORMATION
  Report Type: Spontaneous
  Country: VE (occurrence: VE)
  Receive Date: 20131002
  Receipt Date: 20131002
  Transmission Date: 20140711
  Serious: Yes (Hospitalization, Other)
  Sender: FDA-Public Use
  Company Number: VE-009507513-1309VEN013390

PATIENT
  Age: 30 Year
  Sex: Female

DRUGS (1)
  1. NUVARING [Suspect]
     Indication: CONTRACEPTION
     Dosage: TOTAL DAILY DOSE: 0.120 MG/0.015 MG
     Route: 067
     Dates: start: 20130201, end: 20130919

REACTIONS (4)
  - Tachycardia [Unknown]
  - Pulmonary embolism [Unknown]
  - Blood pressure increased [Unknown]
  - Obstructive airways disorder [Unknown]
